FAERS Safety Report 5278063-3 (Version None)
Quarter: 2007Q1

REPORT INFORMATION
  Report Type: 
  Country: None (occurrence: None)
  Receive Date: 20070321
  Receipt Date: 20070312
  Transmission Date: 20070707
  Serious: Yes (Hospitalization)
  Sender: FDA-Public Use
  Company Number: 2007RR-06285

PATIENT
  Age: 18 Year
  Sex: Female

DRUGS (9)
  1. IMPLANON(ETONOGRESTROL) [Suspect]
     Dates: end: 20060627
  2. MERCILON(DESOGESTREL; ETHINYLESTRADIOL) [Suspect]
     Indication: VAGINAL HAEMORRHAGE
     Dates: start: 20051124
  3. CEFALEXIN (CEPHALEXIN) [Concomitant]
  4. CO-CODAMOL [Concomitant]
  5. ERYTHROMYCIN [Concomitant]
  6. MARVELON [Concomitant]
  7. NORETHINDRONE ACETATE [Concomitant]
  8. PARACETAMOL (ACETAMINOPHEN/PARACETAMOL) [Concomitant]
  9. SALBUTAMOL (SALBUTAMOL) [Concomitant]

REACTIONS (3)
  - DRUG EXPOSURE DURING PREGNANCY [None]
  - MENOMETRORRHAGIA [None]
  - UNINTENDED PREGNANCY [None]
